FAERS Safety Report 5954163-7 (Version None)
Quarter: 2008Q4

REPORT INFORMATION
  Report Type: 
  Country: None (occurrence: None)
  Receive Date: 20081113
  Receipt Date: 20081113
  Transmission Date: 20090506
  Serious: No
  Sender: FDA-Public Use
  Company Number: None

PATIENT
  Sex: Female
  Weight: 61.2356 kg

DRUGS (2)
  1. BUPROPION HCL [Suspect]
     Indication: MAJOR DEPRESSION
     Dosage: 300MG QAM PO
     Route: 048
     Dates: start: 20071201
  2. WELLBUTRIN XL [Suspect]

REACTIONS (6)
  - ANXIETY [None]
  - DISORIENTATION [None]
  - DRUG INEFFECTIVE [None]
  - HEART RATE ABNORMAL [None]
  - NAUSEA [None]
  - THERAPEUTIC RESPONSE UNEXPECTED WITH DRUG SUBSTITUTION [None]
